FAERS Safety Report 8620408-8 (Version None)
Quarter: 2012Q3

REPORT INFORMATION
  Report Type: 
  Country: None (occurrence: None)
  Receive Date: 20120824
  Receipt Date: 20120813
  Transmission Date: 20120928
  Serious: Yes (Hospitalization)
  Sender: FDA-Public Use
  Company Number: FR-GLAXOSMITHKLINE-B0822235A

PATIENT
  Sex: Male

DRUGS (17)
  1. IMODIUM [Suspect]
     Indication: PRODUCT USED FOR UNKNOWN INDICATION
     Route: 065
     Dates: start: 20120201, end: 20120301
  2. ACETAMINOPHEN [Concomitant]
     Indication: PRODUCT USED FOR UNKNOWN INDICATION
     Dosage: 1G FOUR TIMES PER DAY
     Route: 065
     Dates: start: 20120101
  3. FLAGYL [Concomitant]
     Indication: PRODUCT USED FOR UNKNOWN INDICATION
     Dosage: 500MG PER DAY
     Route: 065
     Dates: start: 20120101
  4. ACETAMINOPHEN [Concomitant]
     Dosage: 1G THREE TIMES PER DAY
     Route: 065
  5. ARIXTRA [Suspect]
     Indication: PRODUCT USED FOR UNKNOWN INDICATION
     Dosage: 2.5MG PER DAY
     Route: 065
     Dates: start: 20120101, end: 20120301
  6. AUGMENTIN '500' [Concomitant]
     Indication: PNEUMONIA ASPIRATION
     Route: 065
  7. CODEINE SYRUP [Suspect]
     Indication: PRODUCT USED FOR UNKNOWN INDICATION
     Route: 065
     Dates: start: 20120201, end: 20120301
  8. ATARAX [Suspect]
     Indication: PRODUCT USED FOR UNKNOWN INDICATION
     Dosage: 50MG PER DAY
     Route: 065
  9. TRANXENE [Suspect]
     Indication: DELIRIUM
     Dates: start: 20120101, end: 20120301
  10. NEXIUM [Suspect]
     Indication: PRODUCT USED FOR UNKNOWN INDICATION
     Dosage: 40MG PER DAY
     Route: 065
  11. QUETIAPINE [Suspect]
     Indication: SCHIZOPHRENIA
     Dosage: 2UNIT AT NIGHT
     Route: 048
     Dates: start: 20120206, end: 20120301
  12. CHLORPROMAZINE HCL [Concomitant]
     Dosage: 50DROP THREE TIMES PER DAY
     Route: 065
  13. CLOZAPINE [Concomitant]
     Indication: SCHIZOPHRENIA
     Dosage: 120MG PER DAY
     Route: 065
  14. SANDOSTATIN [Suspect]
     Indication: PRODUCT USED FOR UNKNOWN INDICATION
     Route: 065
     Dates: start: 20120201, end: 20120301
  15. ROCEPHIN [Concomitant]
     Indication: PRODUCT USED FOR UNKNOWN INDICATION
     Dosage: 2G PER DAY
     Route: 065
     Dates: start: 20120101
  16. SPASFON [Concomitant]
     Route: 065
  17. HALOPERIDOL LACTATE [Concomitant]
     Route: 065

REACTIONS (10)
  - LYMPHADENOPATHY [None]
  - SMALL INTESTINAL STENOSIS [None]
  - INCORRECT DRUG ADMINISTRATION DURATION [None]
  - INTESTINAL STENOSIS [None]
  - INTESTINAL OBSTRUCTION [None]
  - INTESTINAL ISCHAEMIA [None]
  - THROMBOSIS [None]
  - MUCOSAL INFLAMMATION [None]
  - ABDOMINAL PAIN [None]
  - ABDOMINAL DISTENSION [None]
